FAERS Safety Report 5678799-6 (Version None)
Quarter: 2008Q1

REPORT INFORMATION
  Report Type: 
  Country: None (occurrence: None)
  Receive Date: 20080320
  Receipt Date: 20080311
  Transmission Date: 20080703
  Serious: Yes (Hospitalization)
  Sender: FDA-Public Use
  Company Number: 100#03#2008-01423

PATIENT
  Age: 13 Year
  Sex: Male

DRUGS (10)
  1. FLUCONAZOLE [Suspect]
     Indication: DRUG USE FOR UNKNOWN INDICATION
     Dosage: 2 MG
     Dates: start: 20071218, end: 20080109
  2. VINCRISTINE [Suspect]
     Indication: DRUG USE FOR UNKNOWN INDICATION
     Dates: start: 20071204, end: 20080109
  3. ALLOPURINOL [Concomitant]
  4. SULFAMETHOXAZOLE AND TRIMETHOPRIM [Concomitant]
  5. DAUNORUBICIN HCL [Concomitant]
  6. DEXAMETHASONE TAB [Concomitant]
  7. METHOTREXATE [Concomitant]
  8. ONDANSETRON HCL [Concomitant]
  9. ACETAMINOPHEN [Concomitant]
  10. RANITIDINE [Concomitant]

REACTIONS (4)
  - DRUG INTERACTION [None]
  - DRUG TOXICITY [None]
  - LIVER FUNCTION TEST ABNORMAL [None]
  - MUSCULAR WEAKNESS [None]
